FAERS Safety Report 6638727-3 (Version None)
Quarter: 2010Q1

REPORT INFORMATION
  Report Type: 
  Country: None (occurrence: None)
  Receive Date: 20100316
  Receipt Date: 20100316
  Transmission Date: 20100710
  Serious: Yes (Hospitalization)
  Sender: FDA-Public Use
  Company Number: None

PATIENT
  Age: 35 Year
  Sex: Female
  Weight: 51 kg

DRUGS (5)
  1. SULFAMETHOXAZOLE/TRIMETHOPRIM 800/160 NOT REPORTED [Suspect]
     Indication: VAGINITIS BACTERIAL
     Dosage: ONE TABLET BID PO
     Route: 048
     Dates: start: 20100121, end: 20100124
  2. NAPROXEN 500MG NOT REPORTED [Concomitant]
     Indication: DYSMENORRHOEA
     Dosage: ONE TABLET BID PO
     Route: 048
     Dates: start: 20100121, end: 20100124
  3. NAPROXEN 500MG NOT REPORTED [Concomitant]
     Indication: MIGRAINE
     Dosage: ONE TABLET BID PO
     Route: 048
     Dates: start: 20100121, end: 20100124
  4. METRONIDAZOLE [Concomitant]
  5. EXCEDRIN (MIGRAINE) [Concomitant]

REACTIONS (1)
  - NEPHROTIC SYNDROME [None]
